FAERS Safety Report 4855446-4 (Version None)
Quarter: 2005Q4

REPORT INFORMATION
  Report Type: 
  Country: None (occurrence: None)
  Receive Date: 20051214
  Receipt Date: 20051128
  Transmission Date: 20060501
  Serious: Yes (Hospitalization)
  Sender: FDA-Public Use
  Company Number: 166735

PATIENT
  Age: 45 Year
  Sex: Male
  Weight: 88.4514 kg

DRUGS (6)
  1. AVONEX [Suspect]
     Indication: MULTIPLE SCLEROSIS
     Dosage: 30 UG;QW;IM
     Route: 030
     Dates: start: 19980201
  2. AVONEX [Suspect]
     Indication: MULTIPLE SCLEROSIS
     Dosage: 30 UG;QW;IM
     Route: 030
  3. IBUPROFEN [Concomitant]
  4. VALIUM [Concomitant]
  5. VICODIN [Concomitant]
  6. MODAFINIL [Concomitant]

REACTIONS (7)
  - COMA [None]
  - CONVULSION [None]
  - GRAND MAL CONVULSION [None]
  - LUNG INFECTION [None]
  - PETIT MAL EPILEPSY [None]
  - RESPIRATORY ARREST [None]
  - SLEEP APNOEA SYNDROME [None]
